FAERS Safety Report 5404067-3 (Version None)
Quarter: 2007Q3

REPORT INFORMATION
  Report Type: 
  Country: None (occurrence: None)
  Receive Date: 20070731
  Receipt Date: 20070719
  Transmission Date: 20080115
  Serious: Yes (Death, Hospitalization, Disabling, Other)
  Sender: FDA-Public Use
  Company Number: 2007JP001681

PATIENT
  Age: 54 Year
  Sex: Male
  Weight: 71 kg

DRUGS (23)
  1. PROGRAF [Suspect]
     Indication: BONE MARROW TRANSPLANT
     Dosage: 2 MG, UID/QD, IV DRIP
     Route: 041
     Dates: start: 20060703, end: 20060918
  2. METHOTREXATE [Concomitant]
  3. CORTICOSTEROIDS [Concomitant]
  4. GANCICLOVIR [Concomitant]
  5. FOSCARNET [Concomitant]
  6. IMMUNE GLOBULIN INTRAVENOUS (HUMAN) [Concomitant]
  7. MAXIPIME (CEFEPIME HYDROCHLODIRE) INJECTION [Concomitant]
  8. MEROPEN (MEROPENEM) INJECTION [Concomitant]
  9. DIFLUCAN [Concomitant]
  10. NEUTROGIN (LENOGRASTIM) INJECTION [Concomitant]
  11. ACICLOVIR (ACICLOVIR) INJECTION [Concomitant]
  12. GASTER INJECTION [Concomitant]
  13. ORGARAN [Concomitant]
  14. OMEPRAL INJECTION [Concomitant]
  15. TIENAM (IMIPENEM, CILASTATIN SODIUM) INJECTION [Concomitant]
  16. SANGLOPOR (IMMUNOGLOBULIN HUMAN NORMAL) INJECTION [Concomitant]
  17. DALACIN-S INJECTION [Concomitant]
  18. MILLISROL (GLYCERYL TRINITRATE) INJECTION [Concomitant]
  19. ANTHROBIN P (ANTITHROMBIN III) INJECTION [Concomitant]
  20. SOL-MELCORT (METHYLPREDNISOLONE SODIUM SUCCINATE) INJECTION [Concomitant]
  21. PERDIPINE (NICARDIPINE HYDROCHLORIDE) INJECTION [Concomitant]
  22. FUNGUARD (MICAFUNGIN) INJECTION [Concomitant]
  23. CALCICOL (CALCIUM GLUCONATE) INJECTION [Concomitant]

REACTIONS (19)
  - AMNESIA [None]
  - BLOOD PRESSURE DECREASED [None]
  - CEREBRAL INFARCTION [None]
  - CONTINUOUS HAEMODIAFILTRATION [None]
  - DRUG INEFFECTIVE [None]
  - ENCEPHALITIS HERPES [None]
  - GENERAL PHYSICAL HEALTH DETERIORATION [None]
  - HISTIOCYTOSIS HAEMATOPHAGIC [None]
  - HYPERKINESIA [None]
  - PLATELET COUNT DECREASED [None]
  - PLEURAL EFFUSION [None]
  - PNEUMONIA BACTERIAL [None]
  - PULMONARY HAEMORRHAGE [None]
  - RASH [None]
  - RENAL IMPAIRMENT [None]
  - RESPIRATORY FAILURE [None]
  - SOMNOLENCE [None]
  - TRANSPLANT FAILURE [None]
  - WHITE BLOOD CELL COUNT DECREASED [None]
